FAERS Safety Report 7624867-9 (Version None)
Quarter: 2011Q3

REPORT INFORMATION
  Report Type: 
  Country: None (occurrence: None)
  Receive Date: 20110720
  Receipt Date: 20110719
  Transmission Date: 20111222
  Serious: Yes (Hospitalization, Other)
  Sender: FDA-Public Use
  Company Number: KR-ABBOTT-11P-090-0835881-00

PATIENT
  Sex: Female

DRUGS (7)
  1. EPOKINE [Concomitant]
     Route: 042
     Dates: start: 20090807, end: 20091106
  2. SEVELAMER HYDROCHLORIDE [Concomitant]
     Indication: HYPERPHOSPHATAEMIA
     Route: 048
     Dates: start: 20090107
  3. EPOKINE [Concomitant]
     Route: 042
     Dates: start: 20091106, end: 20110602
  4. ZEMPLAR [Suspect]
     Indication: HYPERPARATHYROIDISM
     Route: 042
     Dates: start: 20090107
  5. CALCITRIOL [Concomitant]
     Indication: MINERAL SUPPLEMENTATION
     Route: 042
     Dates: start: 20090107
  6. ZOLPIDEM [Concomitant]
     Indication: INSOMNIA
  7. EPOKINE [Concomitant]
     Indication: ANAEMIA
     Route: 042
     Dates: start: 20090107

REACTIONS (7)
  - GASTRIC CANCER [None]
  - INTERVERTEBRAL DISC PROTRUSION [None]
  - DYSPEPSIA [None]
  - LUMBAR SPINAL STENOSIS [None]
  - MULTIPLE DRUG OVERDOSE INTENTIONAL [None]
  - LUNG ABSCESS [None]
  - PNEUMONIA [None]
